FAERS Safety Report 24209159 (Version 1)
Quarter: 2024Q3

REPORT INFORMATION
  Report Type: Other
  Country: CA (occurrence: CA)
  Receive Date: 20240814
  Receipt Date: 20240814
  Transmission Date: 20241016
  Serious: Yes (Other)
  Sender: PFIZER
  Company Number: CA-PFIZER INC-202400233807

PATIENT

DRUGS (2)
  1. CRIZOTINIB [Interacting]
     Active Substance: CRIZOTINIB
     Indication: Neoplasm malignant
     Dosage: UNK
     Route: 065
  2. APIXABAN [Interacting]
     Active Substance: APIXABAN
     Indication: Tumour thrombosis
     Dosage: UNK
     Route: 048

REACTIONS (2)
  - Drug interaction [Unknown]
  - Haemorrhage [Unknown]
